FAERS Safety Report 24305148 (Version 1)
Quarter: 2024Q3

REPORT INFORMATION
  Report Type: Other
  Country: US (occurrence: US)
  Receive Date: 20240911
  Receipt Date: 20240911
  Transmission Date: 20241017
  Serious: No
  Sender: SIGMA TAU
  Company Number: US-LEADIANT BIOSCIENCES, INC.-2023STPI000373

PATIENT
  Sex: Male

DRUGS (1)
  1. MATULANE [Suspect]
     Active Substance: PROCARBAZINE HYDROCHLORIDE
     Indication: Brain neoplasm malignant
     Dosage: 50 MILLIGRAM, 3 CAPSULES (150 MG TOTAL) EVERY NIGHT AT BEDTIME ON DAYS 8-21 EVERY 28 DAY CYCLE
     Route: 048
     Dates: start: 20230107

REACTIONS (3)
  - Constipation [Unknown]
  - Fatigue [Unknown]
  - Pruritus [Unknown]
